FAERS Safety Report 13909408 (Version 4)
Quarter: 2018Q1

REPORT INFORMATION
  Report Type: Report from Study
  Country: US (occurrence: US)
  Receive Date: 20170828
  Receipt Date: 20180222
  Transmission Date: 20180508
  Serious: Yes (Other)
  Sender: FDA-Public Use
  Company Number: US-AMGEN-USASL2017127763

PATIENT
  Age: 51 Year
  Sex: Female

DRUGS (1)
  1. ENBREL [Suspect]
     Active Substance: ETANERCEPT
     Indication: RHEUMATOID ARTHRITIS
     Dosage: 50 MG, QWK
     Route: 065
     Dates: end: 201711

REACTIONS (4)
  - Haematochezia [Unknown]
  - Hepatic enzyme increased [Recovering/Resolving]
  - Musculoskeletal stiffness [Unknown]
  - Liver function test increased [Unknown]

NARRATIVE: CASE EVENT DATE: 201708
